FAERS Safety Report 16027739 (Version 1)
Quarter: 2019Q1

REPORT INFORMATION
  Report Type: Spontaneous
  Country: US (occurrence: US)
  Receive Date: 20190304
  Receipt Date: 20190304
  Transmission Date: 20190418
  Serious: No
  Sender: FDA-Public Use
  Company Number: US-IMPAX LABORATORIES, LLC-2018-IPXL-00876

PATIENT
  Age: 67 Year
  Sex: Male
  Weight: 77 kg

DRUGS (9)
  1. RYTARY [Suspect]
     Active Substance: CARBIDOPA\LEVODOPA
     Dosage: UNK (TITRATION PHASE)
     Route: 048
     Dates: start: 2018
  2. AMANTADINE HCL [Concomitant]
     Active Substance: AMANTADINE HYDROCHLORIDE
     Indication: PARKINSON^S DISEASE
     Dosage: 100 MG, QD
     Route: 048
     Dates: start: 2010
  3. RYTARY [Suspect]
     Active Substance: CARBIDOPA\LEVODOPA
     Dosage: 61.25/245 MG, UNK,
     Route: 065
     Dates: start: 2018
  4. CARBIDOPA-LEVODOPA ER [Suspect]
     Active Substance: CARBIDOPA\LEVODOPA
     Indication: PARKINSON^S DISEASE
     Dosage: 25MG/100MG 2 TABLETS EVERY 2 AND 1/2 HOURS (SIX TIMES A DAY)
     Route: 048
     Dates: start: 2008, end: 20180305
  5. RYTARY [Suspect]
     Active Substance: CARBIDOPA\LEVODOPA
     Dosage: 48.75/195 MG, UNK
     Route: 065
     Dates: start: 20180312
  6. CARBIDOPA-LEVODOPA ER [Suspect]
     Active Substance: CARBIDOPA\LEVODOPA
     Dosage: UNK
     Route: 048
  7. RYTARY [Suspect]
     Active Substance: CARBIDOPA\LEVODOPA
     Indication: PARKINSON^S DISEASE
     Dosage: 48.75/195 MG, 3 CAPSULES 3 TIMES A DAY
     Route: 048
     Dates: start: 20180305, end: 2018
  8. RYTARY [Suspect]
     Active Substance: CARBIDOPA\LEVODOPA
     Dosage: 48.75/195 MG, 3 CAPSULES 3 TIMES A DAY (3 AT 7 AM, 3 AT 2 PM, 3 AT 8 PM)
     Route: 048
     Dates: start: 2018
  9. RYTARY [Suspect]
     Active Substance: CARBIDOPA\LEVODOPA
     Dosage: 48.75/195 MG, HALF MORE DOSAGE OF THREE CAPSULES THERE TIMES A DAY
     Route: 048
     Dates: start: 2018

REACTIONS (3)
  - Parkinson^s disease [Recovering/Resolving]
  - Drug ineffective [Recovering/Resolving]
  - Freezing phenomenon [Recovering/Resolving]

NARRATIVE: CASE EVENT DATE: 20180312
